FAERS Safety Report 14370092 (Version 1)
Quarter: 2018Q1

REPORT INFORMATION
  Report Type: Report from Study
  Country: US (occurrence: US)
  Receive Date: 20180110
  Receipt Date: 20180110
  Transmission Date: 20180509
  Serious: No
  Sender: FDA-Public Use
  Company Number: PHEH2018US001036

PATIENT

DRUGS (2)
  1. ILARIS [Suspect]
     Active Substance: CANAKINUMAB
     Indication: GIGANTISM
     Dosage: 60 MG, QMO
     Route: 030
     Dates: start: 20171111
  2. ILARIS [Suspect]
     Active Substance: CANAKINUMAB
     Indication: ACROMEGALY
     Dosage: 60 MG, QMO
     Route: 030

REACTIONS (2)
  - Inappropriate schedule of drug administration [Unknown]
  - Product use in unapproved indication [Unknown]
